FAERS Safety Report 8261086-X (Version None)
Quarter: 2012Q2

REPORT INFORMATION
  Report Type: 
  Country: None (occurrence: None)
  Receive Date: 20120405
  Receipt Date: 20120329
  Transmission Date: 20120825
  Serious: Yes (Other)
  Sender: FDA-Public Use
  Company Number: PHHY2012BR007386

PATIENT
  Sex: Female

DRUGS (2)
  1. QUETIAPINE FUMARATE [Concomitant]
     Indication: INSOMNIA
     Dosage: 25 MG, QD
  2. DIOVAN [Suspect]
     Indication: BLOOD PRESSURE
     Dosage: 160 MG, QD
     Route: 048

REACTIONS (2)
  - DEMENTIA ALZHEIMER'S TYPE [None]
  - AGITATION [None]
